FAERS Safety Report 8353787 (Version 2)
Quarter: 2013Q1

REPORT INFORMATION
  Report Type: Spontaneous
  Country: DE (occurrence: DE)
  Receive Date: 20120125
  Receipt Date: 20130130
  Transmission Date: 20140127
  Serious: Yes (Death, Hospitalization)
  Sender: FDA-Public Use
  Company Number: DE-COVIDIEN/TYCO HEALTHCARE/MALLINCKRODT-T201200461

PATIENT
  Age: 85 Year
  Sex: Female
  Weight: 66 kg

DRUGS (5)
  1. OPTIRAY [Suspect]
     Indication: COMPUTERISED TOMOGRAM
     Dosage: 75 ML, SINGLE
     Route: 042
     Dates: start: 20120116, end: 20120116
  2. METFORMIN [Concomitant]
     Dosage: UNK
     Dates: end: 20120115
  3. RAMIPRIL HCT [Concomitant]
  4. JONOSTERIL                         /00351401/ [Concomitant]
  5. IRENAT [Concomitant]
     Route: 048

REACTIONS (4)
  - Cardiac arrest [Fatal]
  - Convulsion [Not Recovered/Not Resolved]
  - Tremor [Not Recovered/Not Resolved]
  - Hypersensitivity [Not Recovered/Not Resolved]
